FAERS Safety Report 21243171 (Version 2)
Quarter: 2023Q2

REPORT INFORMATION
  Report Type: Spontaneous
  Country: US (occurrence: US)
  Receive Date: 20220823
  Receipt Date: 20230512
  Transmission Date: 20230721
  Serious: No
  Sender: FDA-Public Use
  Company Number: US-BEH-2022148724

PATIENT
  Sex: Female

DRUGS (2)
  1. HIZENTRA [Suspect]
     Active Substance: HUMAN IMMUNOGLOBULIN G
     Indication: Humoral immune defect
     Dosage: 10 GRAM, QOW
     Route: 058
     Dates: start: 20220202
  2. HIZENTRA [Suspect]
     Active Substance: HUMAN IMMUNOGLOBULIN G
     Dosage: 20 GRAM, QOW
     Route: 058
     Dates: start: 202010

REACTIONS (6)
  - Pyrexia [Unknown]
  - Headache [Unknown]
  - Skin wrinkling [Unknown]
  - Infusion site erythema [Unknown]
  - Pyrexia [Unknown]
  - Chills [Unknown]
